FAERS Safety Report 6184198-3 (Version None)
Quarter: 2009Q2

REPORT INFORMATION
  Report Type: 
  Country: None (occurrence: None)
  Receive Date: 20090508
  Receipt Date: 20090427
  Transmission Date: 20091009
  Serious: Yes (Other)
  Sender: FDA-Public Use
  Company Number: US-PFIZER INC-2007035444

PATIENT
  Sex: Male
  Weight: 55.454 kg

DRUGS (7)
  1. CHANTIX [Suspect]
     Indication: SMOKING CESSATION THERAPY
     Dosage: UNK
     Dates: start: 20070101
  2. SPIRIVA [Interacting]
     Indication: CHRONIC OBSTRUCTIVE PULMONARY DISEASE
  3. ADVAIR HFA [Interacting]
     Indication: CHRONIC OBSTRUCTIVE PULMONARY DISEASE
  4. XOPENEX [Interacting]
     Indication: CHRONIC OBSTRUCTIVE PULMONARY DISEASE
  5. PREVACID [Concomitant]
     Indication: GASTROOESOPHAGEAL REFLUX DISEASE
     Dosage: UNK
  6. ACETYLSALICYLIC ACID [Concomitant]
     Dosage: UNK
  7. TYLENOL W/ CODEINE [Concomitant]
     Indication: HEADACHE
     Dosage: UNK

REACTIONS (10)
  - BRAIN INJURY [None]
  - BRONCHITIS [None]
  - BRONCHOSPASM [None]
  - BRONCHOSTENOSIS [None]
  - DRUG INTERACTION [None]
  - DYSPNOEA [None]
  - HYPERSENSITIVITY [None]
  - OXYGEN CONSUMPTION [None]
  - PARANOIA [None]
  - WEIGHT INCREASED [None]
